FAERS Safety Report 16950436 (Version 1)
Quarter: 2019Q4

REPORT INFORMATION
  Report Type: Spontaneous
  Country: GB (occurrence: GB)
  Receive Date: 20191023
  Receipt Date: 20191023
  Transmission Date: 20200122
  Serious: Yes (Other)
  Sender: FDA-Public Use
  Company Number: GB-SA-2019SA287630

PATIENT
  Age: 65 Year
  Sex: Male

DRUGS (1)
  1. OXALIPLATIN. [Suspect]
     Active Substance: OXALIPLATIN
     Dosage: UNK, UNK
     Route: 065

REACTIONS (3)
  - Feeling drunk [Unknown]
  - Visual impairment [Unknown]
  - Paraesthesia [Unknown]
